FAERS Safety Report 12276566 (Version 1)
Quarter: 2016Q2

REPORT INFORMATION
  Report Type: Spontaneous
  Country: US (occurrence: US)
  Receive Date: 20160418
  Receipt Date: 20160418
  Transmission Date: 20160815
  Serious: No
  Sender: FDA-Public Use
  Company Number: US-GLAXOSMITHKLINE-US2016047607

PATIENT
  Age: 48 Year
  Sex: Male

DRUGS (3)
  1. PRO-AIR (ALBUTEROL SULFATE) [Concomitant]
  2. WELLBUTRIN SR [Concomitant]
     Active Substance: BUPROPION HYDROCHLORIDE
  3. ADVAIR DISKUS [Suspect]
     Active Substance: FLUTICASONE PROPIONATE\SALMETEROL XINAFOATE
     Indication: ASTHMA
     Dosage: 1 PUFF(S), QD
     Route: 055
     Dates: start: 2014

REACTIONS (5)
  - Tooth extraction [Unknown]
  - Toothache [Unknown]
  - Tooth infection [Not Recovered/Not Resolved]
  - Underdose [Unknown]
  - Oral pain [Not Recovered/Not Resolved]

NARRATIVE: CASE EVENT DATE: 201603
